FAERS Safety Report 14087106 (Version 1)
Quarter: 2017Q4

REPORT INFORMATION
  Report Type: Report from Study
  Country: US (occurrence: US)
  Receive Date: 20171013
  Receipt Date: 20171013
  Transmission Date: 20180321
  Serious: No
  Sender: FDA-Public Use
  Company Number: US-AMGEN-USASL2017078293

PATIENT
  Age: 91 Year
  Sex: Female
  Weight: 57.8 kg

DRUGS (21)
  1. ORENCIA [Concomitant]
     Active Substance: ABATACEPT
     Dosage: 500 MG, Q2WK
     Route: 042
  2. COD LIVER OIL [Concomitant]
     Active Substance: COD LIVER OIL
     Dosage: ONE CAPSULE, BID
     Route: 048
  3. MAGNESIUM [Concomitant]
     Active Substance: MAGNESIUM
     Dosage: UNK UNK, BID
     Route: 048
  4. FERROUS [Concomitant]
     Active Substance: IRON
     Dosage: 325 MG, BID
     Route: 048
  5. FOLIC ACID. [Concomitant]
     Active Substance: FOLIC ACID
     Dosage: 1 MG, QD
     Route: 048
  6. PREDNISONE. [Concomitant]
     Active Substance: PREDNISONE
     Dosage: 5 MG, QD
     Route: 048
  7. IMDUR [Concomitant]
     Active Substance: ISOSORBIDE MONONITRATE
     Dosage: 30 MG, EVERY MORNING
     Route: 048
  8. SIMPONI ARIA [Concomitant]
     Active Substance: GOLIMUMAB
     Dosage: 117.6 MG, Q4WK
     Route: 042
  9. PROLIA [Suspect]
     Active Substance: DENOSUMAB
     Indication: BONE DENSITY ABNORMAL
  10. NITROSTAT [Concomitant]
     Active Substance: NITROGLYCERIN
     Indication: CHEST PAIN
     Dosage: 0.4 MG, EVERY 5 MINUTES, AS NECESSARY
     Route: 060
  11. ACETAMINOPHEN. [Concomitant]
     Active Substance: ACETAMINOPHEN
     Dosage: 500 MG, TID
     Route: 048
  12. PROLIA [Suspect]
     Active Substance: DENOSUMAB
     Indication: OSTEOPOROSIS
     Dosage: 60 MG, Q6MO
     Route: 058
  13. PROLIA [Suspect]
     Active Substance: DENOSUMAB
     Indication: OSTEOPENIA
  14. METOPROLOL SUCCINATE. [Concomitant]
     Active Substance: METOPROLOL SUCCINATE
     Dosage: 25 MG, QD
     Route: 048
  15. POTASSIUM CHLORIDE. [Concomitant]
     Active Substance: POTASSIUM CHLORIDE
     Dosage: 10 MEQ, QD
     Route: 048
  16. NEXIUM [Concomitant]
     Active Substance: ESOMEPRAZOLE MAGNESIUM
     Dosage: 40 MG, QD
     Route: 048
  17. VITAMIN C [Concomitant]
     Active Substance: ASCORBIC ACID
     Dosage: 500 MG, QD
  18. CALCIUM + VIT D [Concomitant]
     Active Substance: CALCIUM\VITAMIN D
     Dosage: 600 MG- 125 U, BID
     Route: 048
  19. FUROSEMIDE. [Concomitant]
     Active Substance: FUROSEMIDE
     Dosage: 40 MG, BID
     Route: 048
  20. COUMADIN [Concomitant]
     Active Substance: WARFARIN SODIUM
     Dosage: 2 MG, QD
  21. GINGKO BILOBA [Concomitant]
     Active Substance: GINKGO
     Indication: RAYNAUD^S PHENOMENON
     Dosage: ONE TABLET, BID, AS NECESSARY
     Route: 048

REACTIONS (1)
  - Off label use [Unknown]
